FAERS Safety Report 5582842-2 (Version None)
Quarter: 2007Q4

REPORT INFORMATION
  Report Type: 
  Country: None (occurrence: None)
  Receive Date: 20071231
  Receipt Date: 20071219
  Transmission Date: 20080405
  Serious: Yes (Hospitalization, Other)
  Sender: FDA-Public Use
  Company Number: 2004-07-0097

PATIENT
  Age: 62 Year
  Sex: Male

DRUGS (1)
  1. NITRO-DUR [Suspect]
     Indication: MYOCARDIAL ISCHAEMIA
     Dosage: ;TDER
     Route: 062

REACTIONS (12)
  - APPLICATION SITE REACTION [None]
  - CELLULITIS [None]
  - ERYTHEMA [None]
  - MEDIASTINITIS [None]
  - MUSCLE SWELLING [None]
  - NEUTROPHILIA [None]
  - PAIN [None]
  - PURULENT DISCHARGE [None]
  - PYREXIA [None]
  - SWELLING [None]
  - TACHYCARDIA [None]
  - TACHYPNOEA [None]
